FAERS Safety Report 8897890 (Version 1)
Quarter: 2012Q4

REPORT INFORMATION
  Report Type: 
  Country: US (occurrence: US)
  Receive Date: 20121109
  Receipt Date: 20121109
  Transmission Date: 20130627
  Serious: Yes (Death, Other)
  Sender: FDA-Public Use
  Company Number: US-ELI_LILLY_AND_COMPANY-US201211001524

PATIENT
  Age: 64 Year
  Sex: Female

DRUGS (1)
  1. ALIMTA [Suspect]
     Indication: LUNG NEOPLASM MALIGNANT
     Dosage: 800 mg, every 21 days
     Dates: start: 20120507, end: 20120807

REACTIONS (2)
  - Death [Fatal]
  - Hospice care [Not Recovered/Not Resolved]
